FAERS Safety Report 4767026-X (Version None)
Quarter: 2005Q3

REPORT INFORMATION
  Report Type: 
  Country: None (occurrence: None)
  Receive Date: 20050913
  Receipt Date: 20050901
  Transmission Date: 20060218
  Serious: Yes (Hospitalization)
  Sender: FDA-Public Use
  Company Number: US-JNJFOC-20050900238

PATIENT
  Sex: Female

DRUGS (12)
  1. INFLIXIMAB [Suspect]
     Indication: RHEUMATOID ARTHRITIS
     Route: 042
  2. METHOTREXATE [Concomitant]
  3. LIPITOR [Concomitant]
  4. FOLIC ACID [Concomitant]
  5. FOSAMAX [Concomitant]
  6. VITAMIN B COMPLEX CAP [Concomitant]
  7. VITAMIN B COMPLEX CAP [Concomitant]
  8. VITAMIN B COMPLEX CAP [Concomitant]
  9. VITAMIN B COMPLEX CAP [Concomitant]
  10. VITAMIN E [Concomitant]
  11. HYTONE [Concomitant]
     Route: 061
  12. CLINDA [Concomitant]
     Route: 061

REACTIONS (1)
  - BENIGN SALIVARY GLAND NEOPLASM [None]
